FAERS Safety Report 21661413 (Version 2)
Quarter: 2022Q4

REPORT INFORMATION
  Report Type: Report from Study
  Country: US (occurrence: US)
  Receive Date: 20221130
  Receipt Date: 20221223
  Transmission Date: 20230113
  Serious: Yes (Hospitalization)
  Sender: FDA-Public Use
  Company Number: US-ABBVIE-4216680

PATIENT
  Age: 48 Year
  Sex: Female

DRUGS (1)
  1. VENCLEXTA [Suspect]
     Active Substance: VENETOCLAX
     Indication: Acute myelomonocytic leukaemia
     Dosage: FORM STRENGTH 100 MILLIGRAM
     Route: 048
     Dates: start: 202205

REACTIONS (4)
  - Influenza [Unknown]
  - Cardiac disorder [Unknown]
  - Illness [Unknown]
  - Discomfort [Unknown]

NARRATIVE: CASE EVENT DATE: 20221101
